FAERS Safety Report 8378543-8 (Version None)
Quarter: 2012Q2

REPORT INFORMATION
  Report Type: 
  Country: None (occurrence: None)
  Receive Date: 20120522
  Receipt Date: 20120522
  Transmission Date: 20120825
  Serious: Yes (Other)
  Sender: FDA-Public Use
  Company Number: PHHY2012JP041989

PATIENT
  Sex: Male

DRUGS (2)
  1. FACTOR VIII, RECOMBINANT [Concomitant]
  2. CYCLOSPORINE [Suspect]
     Dosage: UNK UKN, UNK

REACTIONS (2)
  - INFECTION [None]
  - GENERAL PHYSICAL HEALTH DETERIORATION [None]
